FAERS Safety Report 7564517-3 (Version None)
Quarter: 2011Q2

REPORT INFORMATION
  Report Type: 
  Country: None (occurrence: None)
  Receive Date: 20110622
  Receipt Date: 20100701
  Transmission Date: 20111010
  Serious: Yes (Other)
  Sender: FDA-Public Use
  Company Number: US-MYLANLABS-2010S1006050

PATIENT
  Age: 47 Year
  Sex: Female

DRUGS (10)
  1. EFFEXOR [Concomitant]
     Route: 048
  2. ARIPIPRAZOLE [Concomitant]
     Route: 048
  3. CLOZAPINE [Suspect]
     Indication: MAJOR DEPRESSION
     Route: 048
  4. CLOZAPINE [Suspect]
     Route: 048
     Dates: start: 20100415
  5. LITHIUM [Concomitant]
     Route: 048
  6. CLOZAPINE [Suspect]
     Route: 048
     Dates: end: 20100412
  7. CLOZAPINE [Suspect]
     Route: 048
     Dates: end: 20100412
  8. CLOZAPINE [Suspect]
     Route: 048
     Dates: start: 20100415
  9. CITALOPRAM HYDROBROMIDE [Concomitant]
     Route: 048
  10. CLOZAPINE [Suspect]
     Indication: PSYCHOTIC DISORDER
     Route: 048

REACTIONS (1)
  - GRANULOCYTOPENIA [None]
